FAERS Safety Report 19568332 (Version 3)
Quarter: 2021Q3

REPORT INFORMATION
  Report Type: Spontaneous
  Country: US (occurrence: US)
  Receive Date: 20210716
  Receipt Date: 20210827
  Transmission Date: 20211014
  Serious: No
  Sender: FDA-Public Use
  Company Number: US-PFIZER INC-2021724465

PATIENT
  Age: 15 Year
  Sex: Male
  Weight: 131.54 kg

DRUGS (1)
  1. GENOTROPIN [Suspect]
     Active Substance: SOMATROPIN
     Indication: HYPOPITUITARISM
     Dosage: 1.6 MG INJECTION, ONCE DAILY
     Dates: start: 202010

REACTIONS (5)
  - Drug dose omission by device [Unknown]
  - Device use error [Unknown]
  - Off label use [Unknown]
  - Poor quality device used [Unknown]
  - Device breakage [Unknown]
